FAERS Safety Report 6221821-9 (Version None)
Quarter: 2009Q2

REPORT INFORMATION
  Report Type: 
  Country: None (occurrence: None)
  Receive Date: 20090610
  Receipt Date: 20090529
  Transmission Date: 20091009
  Serious: Yes (Hospitalization)
  Sender: FDA-Public Use
  Company Number: TR-PFIZER INC-2009221032

PATIENT

DRUGS (2)
  1. SULFASALAZINE [Suspect]
     Dosage: UNK
  2. CHLOROQUINE [Interacting]
     Indication: RHEUMATOID ARTHRITIS
     Dosage: UNK

REACTIONS (2)
  - BIPOLAR I DISORDER [None]
  - DRUG INTERACTION [None]
